FAERS Safety Report 8091362-5 (Version None)
Quarter: 2012Q1

REPORT INFORMATION
  Report Type: 
  Country: None (occurrence: None)
  Receive Date: 20120129
  Receipt Date: 20111031
  Transmission Date: 20120608
  Serious: No
  Sender: FDA-Public Use
  Company Number: US-ABBOTT-11P-163-0870499-00

PATIENT
  Sex: Female
  Weight: 93.07 kg

DRUGS (6)
  1. UNKNOWN WATER PILL [Concomitant]
     Indication: OEDEMA PERIPHERAL
  2. UNKNOWN MEDICATION [Concomitant]
     Indication: CARDIAC DISORDER
  3. PLAVIX [Concomitant]
     Indication: ANTICOAGULANT THERAPY
  4. SINGULAIR [Concomitant]
     Indication: RESPIRATORY DISORDER
  5. UNKNOWN MEDICATION [Concomitant]
     Indication: HYPERTENSION
  6. HUMIRA [Suspect]
     Indication: PSORIASIS
     Route: 058
     Dates: start: 20110801

REACTIONS (9)
  - MUSCLE SPASMS [None]
  - NAUSEA [None]
  - DEVICE MALFUNCTION [None]
  - FATIGUE [None]
  - HYPOAESTHESIA [None]
  - PSORIASIS [None]
  - DRUG DOSE OMISSION [None]
  - ASTHENIA [None]
  - INSOMNIA [None]
